FAERS Safety Report 11691121 (Version 1)
Quarter: 2015Q4

REPORT INFORMATION
  Report Type: Spontaneous
  Country: US (occurrence: US)
  Receive Date: 20151102
  Receipt Date: 20151102
  Transmission Date: 20160304
  Serious: Yes (Other)
  Sender: FDA-Public Use
  Company Number: US-PFIZER INC-2015364969

PATIENT
  Sex: Female
  Weight: 91 kg

DRUGS (1)
  1. SERTRALINE HCL [Suspect]
     Active Substance: SERTRALINE HYDROCHLORIDE
     Indication: DEPRESSION
     Dosage: 100 MG, 2X/DAY

REACTIONS (5)
  - Palpitations [Unknown]
  - Chest pain [Unknown]
  - Hypothyroidism [Unknown]
  - Heart injury [Unknown]
  - Heart rate increased [Unknown]
